FAERS Safety Report 12504949 (Version 2)
Quarter: 2016Q3

REPORT INFORMATION
  Report Type: Spontaneous
  Country: US (occurrence: US)
  Receive Date: 20160628
  Receipt Date: 20160802
  Transmission Date: 20161109
  Serious: No
  Sender: FDA-Public Use
  Company Number: US-GLAXOSMITHKLINE-US2016GSK085599

PATIENT
  Age: 70 Year
  Sex: Female

DRUGS (2)
  1. FLONASE [Suspect]
     Active Substance: FLUTICASONE PROPIONATE
     Indication: HYPERSENSITIVITY
     Dosage: UNK, QD
  2. FLONASE [Suspect]
     Active Substance: FLUTICASONE PROPIONATE
     Dosage: UNK, QOD

REACTIONS (6)
  - Stress [Unknown]
  - Adverse drug reaction [Unknown]
  - Headache [Unknown]
  - Eye pain [Unknown]
  - Off label use [Unknown]
  - Vision blurred [Unknown]
